FAERS Safety Report 4563273-0 (Version None)
Quarter: 2005Q1

REPORT INFORMATION
  Report Type: 
  Country: None (occurrence: None)
  Receive Date: 20050125
  Receipt Date: 20050112
  Transmission Date: 20050727
  Serious: Yes (Hospitalization)
  Sender: FDA-Public Use
  Company Number: 2005015491

PATIENT
  Age: 72 Year
  Sex: Male
  Weight: 85 kg

DRUGS (10)
  1. SOLU-MEDROL [Suspect]
     Indication: ADENOCARCINOMA
     Dosage: 120 MG (WEEKLY), INTRAVENOUS
     Route: 042
     Dates: start: 20041015, end: 20041125
  2. ONDANSETRON HCL [Suspect]
     Indication: ADENOCARCINOMA
     Dosage: INTRAVENOUS
     Route: 042
     Dates: start: 20041015, end: 20041125
  3. GEMCITABINE (GEMCITABINE) [Suspect]
     Indication: ADENOCARCINOMA
     Dosage: 1.9 GRAM (WEEKLY), INTRAVENOUS
     Route: 042
     Dates: start: 20041015, end: 20041125
  4. HYDROCHLOROTHIAZIDE [Concomitant]
  5. DIGOXIN [Concomitant]
  6. AMLODIPINE [Concomitant]
  7. FLUINDIONE (FLUINDIONE) [Concomitant]
  8. PRAVASTATIN [Concomitant]
  9. ACETYLSALICYLIC ACID SRT [Concomitant]
  10. INSULIN HUMAN (INSULIN HUMAN) [Concomitant]

REACTIONS (5)
  - ACUTE PULMONARY OEDEMA [None]
  - CARDIAC FAILURE [None]
  - COUGH [None]
  - HYPOCAPNIA [None]
  - HYPOXIA [None]
